FAERS Safety Report 21711443 (Version 3)
Quarter: 2023Q1

REPORT INFORMATION
  Report Type: Spontaneous
  Country: US (occurrence: US)
  Receive Date: 20221212
  Receipt Date: 20230131
  Transmission Date: 20230418
  Serious: No
  Sender: FDA-Public Use
  Company Number: US-BRISTOL-MYERS SQUIBB COMPANY-2022-150990

PATIENT
  Age: 84 Year
  Sex: Male

DRUGS (1)
  1. POMALYST [Suspect]
     Active Substance: POMALIDOMIDE
     Indication: Plasma cell myeloma
     Dosage: FREQUENCY: TAKE 1 CAPSULE BY MOUTH EVERY DAY ON DAYS 1-14 WITH A 7 DAY BREAK EVERY 21 DAYS.
     Route: 048
     Dates: start: 20221017

REACTIONS (4)
  - Product dose omission issue [Unknown]
  - Laboratory test abnormal [Unknown]
  - Product prescribing error [Unknown]
  - Off label use [Unknown]
